FAERS Safety Report 10469440 (Version 4)
Quarter: 2014Q3

REPORT INFORMATION
  Report Type: Spontaneous
  Country: US (occurrence: None)
  Receive Date: 20131025
  Receipt Date: 20140827
  Transmission Date: 20150326
  Serious: Yes (Death, Hospitalization)
  Sender: FDA-Public Use
  Company Number: US-000770

PATIENT
  Sex: Female

DRUGS (17)
  1. BENADRYL [Concomitant]
     Active Substance: DIPHENHYDRAMINE HYDROCHLORIDE
  2. SYNTHROID [Concomitant]
     Active Substance: LEVOTHYROXINE SODIUM
  3. LOMOTIL [Concomitant]
     Active Substance: ATROPINE SULFATE\DIPHENOXYLATE HYDROCHLORIDE
  4. ROXICET [Concomitant]
     Active Substance: ACETAMINOPHEN\OXYCODONE HYDROCHLORIDE
  5. GATTEX [Suspect]
     Active Substance: TEDUGLUTIDE\WATER
     Indication: SHORT-BOWEL SYNDROME
     Route: 058
     Dates: start: 20130813, end: 20130822
  6. MYLANTA [Concomitant]
     Active Substance: ALUMINUM HYDROXIDE\MAGNESIUM HYDROXIDE\SIMETHICONE
  7. PYRIDIUM [Concomitant]
     Active Substance: PHENAZOPYRIDINE
  8. HYOSCYAMINE [Concomitant]
     Active Substance: HYOSCYAMINE
  9. FLONASE [Concomitant]
     Active Substance: FLUTICASONE PROPIONATE
  10. MILK OF MAGNESIA [Concomitant]
     Active Substance: MAGNESIUM HYDROXIDE
  11. SOLUTIONS FOR PARENTERAL NUTRITION [Concomitant]
     Active Substance: AMINO ACIDS\DEXTROSE\ELECTROLYTES NOS
  12. FIORICET [Concomitant]
     Active Substance: ACETAMINOPHEN\BUTALBITAL\CAFFEINE
  13. LEVEMIR [Concomitant]
     Active Substance: INSULIN DETEMIR
  14. DILAUDID [Concomitant]
     Active Substance: HYDROMORPHONE HYDROCHLORIDE
  15. SKELAXIN [Concomitant]
     Active Substance: METAXALONE
  16. NOVOLOG [Concomitant]
     Active Substance: INSULIN ASPART
  17. ZOFRAN [Concomitant]
     Active Substance: ONDANSETRON HYDROCHLORIDE

REACTIONS (20)
  - Swelling [None]
  - Adverse event [None]
  - Anaemia of chronic disease [None]
  - Headache [None]
  - Abdominal distension [None]
  - Upper respiratory tract infection [None]
  - Abdominal pain [None]
  - Cachexia [None]
  - Gastrointestinal stoma complication [None]
  - Hypersensitivity [None]
  - Influenza like illness [None]
  - Vaginal haemorrhage [None]
  - Weight fluctuation [None]
  - Gastrointestinal haemorrhage [None]
  - Diarrhoea [None]
  - Overdose [None]
  - Pyrexia [None]
  - Peripheral swelling [None]
  - Excessive granulation tissue [None]
  - Fatigue [None]

NARRATIVE: CASE EVENT DATE: 2013
